FAERS Safety Report 7112161-4 (Version None)
Quarter: 2010Q4

REPORT INFORMATION
  Report Type: 
  Country: None (occurrence: None)
  Receive Date: 20101119
  Receipt Date: 20100308
  Transmission Date: 20110411
  Serious: No
  Sender: FDA-Public Use
  Company Number: A0841038A

PATIENT
  Age: 66 Year
  Sex: Male
  Weight: 93.2 kg

DRUGS (1)
  1. AVODART [Suspect]
     Route: 065

REACTIONS (4)
  - BREAST ENLARGEMENT [None]
  - BREAST TENDERNESS [None]
  - DISCOMFORT [None]
  - ULTRASOUND SCAN [None]
